FAERS Safety Report 23941857 (Version 1)
Quarter: 2024Q2

REPORT INFORMATION
  Report Type: Spontaneous
  Country: US (occurrence: US)
  Receive Date: 20240605
  Receipt Date: 20240605
  Transmission Date: 20240716
  Serious: Yes (Other)
  Sender: FDA-Public Use
  Company Number: US-FARMAPROD-202405-1949

PATIENT
  Sex: Female

DRUGS (24)
  1. OXERVATE [Suspect]
     Active Substance: CENEGERMIN-BKBJ
     Indication: Neurotrophic keratopathy
     Route: 047
     Dates: start: 20240415
  2. OXERVATE [Suspect]
     Active Substance: CENEGERMIN-BKBJ
     Indication: Ulcerative keratitis
  3. OXERVATE [Suspect]
     Active Substance: CENEGERMIN-BKBJ
  4. OPTASE HYLO NIGHT [Concomitant]
  5. CYCLOSPORINE [Concomitant]
     Active Substance: CYCLOSPORINE
     Dosage: DROPERETTE
  6. FISH OIL [Concomitant]
     Active Substance: FISH OIL
  7. OMEGA-3 ACIDS [Concomitant]
     Active Substance: OMEGA-3 FATTY ACIDS
     Dosage: 2100 1050-1200
  8. CALCIUM -VIT D3 [Concomitant]
     Dosage: 500MG-10
  9. ALCLOMETASONE DIPROPIONATE [Concomitant]
     Active Substance: ALCLOMETASONE DIPROPIONATE
  10. DESONIDE [Concomitant]
     Active Substance: DESONIDE
  11. ZYRTEC [Concomitant]
     Active Substance: CETIRIZINE HYDROCHLORIDE
  12. TRIAMCINOLONE ACETONIDE [Concomitant]
     Active Substance: TRIAMCINOLONE ACETONIDE
  13. CENTRUM SILVER WOMEN [Concomitant]
  14. RECLAST [Concomitant]
     Active Substance: ZOLEDRONIC ACID
     Dosage: 5 MG/100 ML, PIGGY BACK BOTTLE
  15. ELIDEL [Concomitant]
     Active Substance: PIMECROLIMUS
  16. EPINEPHRINE [Concomitant]
     Active Substance: EPINEPHRINE
     Dosage: 0.15MG/0.15ML, AUTOINJECTOR
  17. MAGNESIUM [Concomitant]
     Active Substance: MAGNESIUM
  18. VITAMIN D3 [Concomitant]
     Active Substance: CHOLECALCIFEROL
  19. ACYCLOVIR [Concomitant]
     Active Substance: ACYCLOVIR
  20. LEVOTHYROXINE SODIUM [Concomitant]
     Active Substance: LEVOTHYROXINE SODIUM
  21. BRIMONIDINE TARTRATE [Concomitant]
     Active Substance: BRIMONIDINE TARTRATE
  22. MIEBO [Concomitant]
     Active Substance: PERFLUOROHEXYLOCTANE
  23. RESTASIS [Concomitant]
     Active Substance: CYCLOSPORINE
     Dosage: DROPERETTE
  24. DEVICE [Concomitant]
     Active Substance: DEVICE

REACTIONS (6)
  - Nephrolithiasis [Unknown]
  - Headache [Unknown]
  - Dry eye [Unknown]
  - Eye pain [Unknown]
  - Ocular hyperaemia [Unknown]
  - Product dose omission issue [Unknown]
